FAERS Safety Report 5706444-X (Version None)
Quarter: 2008Q2

REPORT INFORMATION
  Report Type: 
  Country: None (occurrence: None)
  Receive Date: 20080414
  Receipt Date: 20080403
  Transmission Date: 20081010
  Serious: Yes (Death)
  Sender: FDA-Public Use
  Company Number: 163-21880-08040702

PATIENT
  Age: 86 Year

DRUGS (1)
  1. REVLIMID [Suspect]
     Indication: CHRONIC LYMPHOCYTIC LEUKAEMIA
     Dosage: 10 MG DAILY WITH DOSE ESCALATION UP TO 25 MG DAILY., ORAL
     Route: 048

REACTIONS (1)
  - PNEUMONIA [None]
